FAERS Safety Report 20239086 (Version 2)
Quarter: 2022Q1

REPORT INFORMATION
  Report Type: Spontaneous
  Country: US (occurrence: US)
  Receive Date: 20211228
  Receipt Date: 20220127
  Transmission Date: 20220423
  Serious: No
  Sender: FDA-Public Use
  Company Number: US-JNJFOC-20211229978

PATIENT
  Sex: Female
  Weight: 180 kg

DRUGS (2)
  1. XARELTO [Suspect]
     Active Substance: RIVAROXABAN
     Indication: Pulmonary thrombosis
     Route: 048
     Dates: start: 202109
  2. VALSARTAN [Concomitant]
     Active Substance: VALSARTAN

REACTIONS (5)
  - Diarrhoea [Recovered/Resolved]
  - Abdominal pain [Not Recovered/Not Resolved]
  - Dizziness [Unknown]
  - Candida infection [Unknown]
  - Epistaxis [Unknown]
